FAERS Safety Report 4665067-4 (Version None)
Quarter: 2005Q2

REPORT INFORMATION
  Report Type: 
  Country: None (occurrence: None)
  Receive Date: 20050517
  Receipt Date: 20050511
  Transmission Date: 20051028
  Serious: Yes (Death, Hospitalization)
  Sender: FDA-Public Use
  Company Number: GBS050316988

PATIENT
  Age: 57 Year
  Sex: Female

DRUGS (15)
  1. FORTEO [Suspect]
     Indication: OSTEOPOROSIS
     Dosage: 20 UG DAY
     Dates: start: 20031205
  2. PROPRANOLOL [Concomitant]
  3. PREDNISOLONE [Concomitant]
  4. QUININE SULFATE [Concomitant]
  5. FRUSEMIDE [Concomitant]
  6. OMEPRAZOLE [Concomitant]
  7. PARACETAMOL [Concomitant]
  8. WARFARIN SODIUM [Concomitant]
  9. NEOCLARITYN (DESLORATADINE) [Concomitant]
  10. NOVORAPID (INSULIN ASPART) [Concomitant]
  11. DETRUSITOL (TOLTERODINE L-TARTRATE) [Concomitant]
  12. FENTANYL [Concomitant]
  13. SALBUTAMOL [Concomitant]
  14. IPRATROPIUM BROMIDE [Concomitant]
  15. LEFLUNOMIDE [Concomitant]

REACTIONS (10)
  - CARDIAC DISORDER [None]
  - CARDIAC FAILURE [None]
  - CONDITION AGGRAVATED [None]
  - DYSPNOEA [None]
  - HYPOTENSION [None]
  - IMMUNOSUPPRESSION [None]
  - MULTI-ORGAN FAILURE [None]
  - RENAL FAILURE ACUTE [None]
  - SEPSIS [None]
  - TACHYCARDIA [None]
